FAERS Safety Report 4802804-X (Version None)
Quarter: 2005Q4

REPORT INFORMATION
  Report Type: 
  Country: None (occurrence: None)
  Receive Date: 20051017
  Receipt Date: 20051017
  Transmission Date: 20060501
  Serious: Yes (Hospitalization, Other)
  Sender: FDA-Public Use
  Company Number: None

PATIENT
  Sex: Female
  Weight: 87.7 kg

DRUGS (2)
  1. CYTARABINE [Suspect]
     Indication: ACUTE MYELOID LEUKAEMIA
     Dosage: 100 MG/M2/DAY BY CIV ON DAYS 1-7 TOTAL DOSE 1400 MG
     Route: 042
     Dates: start: 20050902, end: 20050908
  2. DAUNORUBICIN [Suspect]
     Dosage: 600 MG/M2/DAY BY IVP ON DAYS 1-3 TOTAL DOSE 360 MG
     Dates: end: 20050908

REACTIONS (4)
  - HYPOCALCAEMIA [None]
  - HYPOKALAEMIA [None]
  - HYPOMAGNESAEMIA [None]
  - PAIN IN EXTREMITY [None]
